FAERS Safety Report 19635133 (Version 3)
Quarter: 2021Q3

REPORT INFORMATION
  Report Type: Spontaneous
  Country: FR (occurrence: FR)
  Receive Date: 20210730
  Receipt Date: 20210909
  Transmission Date: 20211014
  Serious: Yes (Other)
  Sender: FDA-Public Use
  Company Number: FR-BAYER-2021-184536

PATIENT
  Age: 33 Year
  Sex: Female

DRUGS (3)
  1. MIRENA [Suspect]
     Active Substance: LEVONORGESTREL
     Indication: INTRADUCTAL PAPILLOMA OF BREAST
  2. MIRENA [Suspect]
     Active Substance: LEVONORGESTREL
     Indication: ASHERMAN^S SYNDROME
     Dosage: 20 ?G, CONT
     Route: 015
     Dates: start: 2019
  3. MODERNA COVID?19 VACCINE [Concomitant]
     Active Substance: CX-024414
     Route: 030

REACTIONS (5)
  - Aphasia [Recovered/Resolved]
  - Off label use of device [None]
  - Transient ischaemic attack [Recovered/Resolved]
  - Migraine with aura [Recovered/Resolved]
  - Device use issue [None]

NARRATIVE: CASE EVENT DATE: 2019
